FAERS Safety Report 23245464 (Version 9)
Quarter: 2024Q4

REPORT INFORMATION
  Report Type: Report from Study
  Country: US (occurrence: US)
  Receive Date: 20231130
  Receipt Date: 20241203
  Transmission Date: 20250115
  Serious: Yes (Other)
  Sender: NOVARTIS
  Company Number: US-002147023-NVSC2023US252781

PATIENT
  Age: 47 Year
  Sex: Female

DRUGS (6)
  1. GILENYA [Suspect]
     Active Substance: FINGOLIMOD HYDROCHLORIDE
     Indication: Relapsing multiple sclerosis
     Dosage: 0.5 MG, QD
     Route: 048
     Dates: start: 20151101, end: 20221101
  2. KESIMPTA [Suspect]
     Active Substance: OFATUMUMAB
     Indication: Relapsing multiple sclerosis
     Dosage: 20 MG, QMO
     Route: 058
  3. LIPITOR [Concomitant]
     Active Substance: ATORVASTATIN CALCIUM
     Indication: Blood cholesterol
     Dosage: UNK (IN DEC)
     Route: 065
  4. CARBAMAZEPINE [Concomitant]
     Active Substance: CARBAMAZEPINE
     Indication: Product used for unknown indication
     Dosage: UNK
     Route: 065
  5. BACLOFEN [Concomitant]
     Active Substance: BACLOFEN
     Indication: Product used for unknown indication
     Dosage: UNK
     Route: 065
  6. ASPARTAME [Concomitant]
     Active Substance: ASPARTAME
     Indication: Product used for unknown indication
     Dosage: UNK
     Route: 065

REACTIONS (16)
  - Blindness [Unknown]
  - Pain [Recovered/Resolved with Sequelae]
  - Endometriosis [Unknown]
  - Pain in extremity [Recovered/Resolved]
  - Blood pressure abnormal [Unknown]
  - Dizziness [Unknown]
  - Muscle tightness [Unknown]
  - Nasopharyngitis [Unknown]
  - Muscle spasms [Unknown]
  - Arthropathy [Unknown]
  - Fatigue [Unknown]
  - Blood sodium decreased [Unknown]
  - Blood cholesterol increased [Recovered/Resolved with Sequelae]
  - Stress [Unknown]
  - Heart rate increased [Recovered/Resolved with Sequelae]
  - Anxiety [Recovered/Resolved with Sequelae]

NARRATIVE: CASE EVENT DATE: 20231009
